FAERS Safety Report 25513782 (Version 1)
Quarter: 2025Q3

REPORT INFORMATION
  Report Type: Spontaneous
  Country: US (occurrence: US)
  Receive Date: 20250703
  Receipt Date: 20250703
  Transmission Date: 20251021
  Serious: No
  Sender: RADIUS PHARM
  Company Number: US-RADIUS HEALTH INC.-2024US009552

PATIENT
  Sex: Female

DRUGS (1)
  1. TYMLOS [Suspect]
     Active Substance: ABALOPARATIDE
     Indication: Senile osteoporosis
     Dosage: 80MCG UNDER THE SKIN ONCE DAILY
     Route: 058
     Dates: start: 20241030

REACTIONS (9)
  - Tachycardia [Unknown]
  - Restlessness [Unknown]
  - Therapy interrupted [Unknown]
  - Pain [Unknown]
  - Constipation [Unknown]
  - Headache [Unknown]
  - Injection site pain [Recovered/Resolved]
  - Arthralgia [Unknown]
  - Nausea [Unknown]
